FAERS Safety Report 8130224-1 (Version None)
Quarter: 2012Q1

REPORT INFORMATION
  Report Type: 
  Country: None (occurrence: None)
  Receive Date: 20120210
  Receipt Date: 20120203
  Transmission Date: 20120608
  Serious: Yes (Other)
  Sender: FDA-Public Use
  Company Number: US-CELGENEUS-163-21880-12011547

PATIENT
  Sex: Female

DRUGS (1)
  1. REVLIMID [Suspect]
     Dosage: 25 MILLIGRAM
     Route: 048
     Dates: start: 20111219, end: 20111230

REACTIONS (6)
  - DIZZINESS [None]
  - HYPOTENSION [None]
  - ADVERSE DRUG REACTION [None]
  - RASH [None]
  - SWELLING [None]
  - VISUAL IMPAIRMENT [None]
